FAERS Safety Report 24434519 (Version 1)
Quarter: 2024Q4

REPORT INFORMATION
  Report Type: Spontaneous
  Country: PE (occurrence: PE)
  Receive Date: 20241014
  Receipt Date: 20241014
  Transmission Date: 20250114
  Serious: Yes (Other)
  Sender: BOEHRINGER INGELHEIM
  Company Number: PE-BoehringerIngelheim-2024-BI-049096

PATIENT
  Age: 54 Year
  Sex: Male
  Weight: 68 kg

DRUGS (1)
  1. EMPAGLIFLOZIN\METFORMIN HYDROCHLORIDE [Suspect]
     Active Substance: EMPAGLIFLOZIN\METFORMIN HYDROCHLORIDE
     Indication: Type 2 diabetes mellitus
     Dosage: 12.5/1000 MG
     Route: 048
     Dates: start: 2015, end: 20240815

REACTIONS (9)
  - Pancreatitis [Recovered/Resolved]
  - Dizziness [Recovered/Resolved]
  - Tinnitus [Recovered/Resolved]
  - Abdominal discomfort [Recovered/Resolved]
  - Jaundice [Recovered/Resolved]
  - Hyperhidrosis [Recovered/Resolved]
  - Dysstasia [Recovered/Resolved]
  - Hepatic steatosis [Recovered/Resolved]
  - Weight decreased [Recovered/Resolved]

NARRATIVE: CASE EVENT DATE: 20230101
